FAERS Safety Report 7359503-2 (Version None)
Quarter: 2011Q1

REPORT INFORMATION
  Report Type: 
  Country: None (occurrence: None)
  Receive Date: 20110317
  Receipt Date: 20091216
  Transmission Date: 20110831
  Serious: No
  Sender: FDA-Public Use
  Company Number: US-PFIZER INC-2009311810

PATIENT
  Sex: Female
  Weight: 68.027 kg

DRUGS (1)
  1. AMLODIPINE BESYLATE [Suspect]
     Indication: HYPERTENSION
     Route: 048
     Dates: start: 20090101, end: 20090101

REACTIONS (5)
  - MALAISE [None]
  - INSOMNIA [None]
  - DRUG INEFFECTIVE [None]
  - NAUSEA [None]
  - HYPERHIDROSIS [None]
